FAERS Safety Report 8490289-4 (Version None)
Quarter: 2012Q3

REPORT INFORMATION
  Report Type: 
  Country: None (occurrence: None)
  Receive Date: 20120705
  Receipt Date: 20120508
  Transmission Date: 20120928
  Serious: No
  Sender: FDA-Public Use
  Company Number: US-BAUSCH-2012BL003099

PATIENT
  Age: 50 Year
  Sex: Female

DRUGS (2)
  1. PROPYLENE GLYCOL [Concomitant]
  2. OPCON-A [Suspect]
     Indication: MULTIPLE ALLERGIES
     Route: 047
     Dates: start: 20120506, end: 20120507

REACTIONS (3)
  - LACRIMATION INCREASED [None]
  - EYE IRRITATION [None]
  - EYE PAIN [None]
